FAERS Safety Report 6303308-8 (Version None)
Quarter: 2009Q3

REPORT INFORMATION
  Report Type: 
  Country: None (occurrence: None)
  Receive Date: 20090810
  Receipt Date: 20090423
  Transmission Date: 20100115
  Serious: No
  Sender: FDA-Public Use
  Company Number: A0780321A

PATIENT
  Age: 37 Year
  Sex: Female

DRUGS (2)
  1. TREXIMET [Suspect]
     Indication: MIGRAINE
     Dosage: 2TAB SINGLE DOSE
     Route: 048
     Dates: start: 20090423
  2. CYMBALTA [Concomitant]

REACTIONS (2)
  - DRUG ADMINISTRATION ERROR [None]
  - NAUSEA [None]
